FAERS Safety Report 9339950 (Version 1)
Quarter: 2013Q2

REPORT INFORMATION
  Report Type: Spontaneous
  Country: US (occurrence: US)
  Receive Date: 20130610
  Receipt Date: 20130610
  Transmission Date: 20140414
  Serious: No
  Sender: FDA-Public Use
  Company Number: US-PFIZER INC-2013171745

PATIENT
  Age: 87 Year
  Sex: Female

DRUGS (1)
  1. ADVIL [Suspect]
     Indication: PAIN
     Dosage: 200 MG, ONCE A DAY
     Dates: start: 20130420

REACTIONS (1)
  - Drug ineffective [Unknown]
